FAERS Safety Report 4838244-7 (Version None)
Quarter: 2005Q4

REPORT INFORMATION
  Report Type: 
  Country: None (occurrence: None)
  Receive Date: 20051128
  Receipt Date: 20051117
  Transmission Date: 20060501
  Serious: Yes (Hospitalization, Disabling)
  Sender: FDA-Public Use
  Company Number: NO-MERCK-0511NOR00029

PATIENT
  Age: 47 Year
  Sex: Male

DRUGS (8)
  1. VIOXX [Suspect]
     Indication: ANKYLOSING SPONDYLITIS
     Route: 048
     Dates: start: 20010827, end: 20041012
  2. VIOXX [Suspect]
     Route: 048
     Dates: start: 20010601, end: 20010826
  3. ATORVASTATIN CALCIUM [Concomitant]
     Indication: HYPERCHOLESTEROLAEMIA
     Route: 048
  4. ASPIRIN AND MAGNESIUM OXIDE [Concomitant]
     Route: 048
  5. ISOSORBIDE MONONITRATE [Concomitant]
     Route: 048
  6. ATENOLOL [Concomitant]
     Route: 051
  7. OMEPRAZOLE [Concomitant]
     Route: 048
     Dates: start: 20010613
  8. NITROGLYCERIN [Concomitant]
     Route: 060

REACTIONS (3)
  - ANGINA PECTORIS [None]
  - GAMMA-GLUTAMYLTRANSFERASE INCREASED [None]
  - MENTAL DISORDER [None]
